FAERS Safety Report 15789019 (Version 1)
Quarter: 2019Q1

REPORT INFORMATION
  Report Type: Spontaneous
  Country: CH (occurrence: CH)
  Receive Date: 20190104
  Receipt Date: 20190104
  Transmission Date: 20190417
  Serious: Yes (Other)
  Sender: FDA-Public Use
  Company Number: CH-BAYER-2019-000542

PATIENT
  Sex: Female

DRUGS (25)
  1. AVALOX [Suspect]
     Active Substance: MOXIFLOXACIN HYDROCHLORIDE
     Dosage: 400 MG, QD
     Route: 048
     Dates: start: 20180421, end: 20180425
  2. AVALOX [Suspect]
     Active Substance: MOXIFLOXACIN HYDROCHLORIDE
     Dosage: 400 MG, QD
     Route: 048
     Dates: start: 20180608, end: 20180614
  3. METOLAZONE. [Concomitant]
     Active Substance: METOLAZONE
     Dosage: 5 MG, QD
  4. REVATIO [Concomitant]
     Active Substance: SILDENAFIL CITRATE
     Dosage: 5 MG, UNK
  5. LASIX [Concomitant]
     Active Substance: FUROSEMIDE
     Dosage: 250 MG, BID
  6. PREDNISONE. [Concomitant]
     Active Substance: PREDNISONE
     Dosage: 5 MG, QD
  7. CALCIUMACETAT [Concomitant]
     Active Substance: CALCIUM ACETATE
     Dosage: 1500 MG, TID
  8. AVALOX [Suspect]
     Active Substance: MOXIFLOXACIN HYDROCHLORIDE
     Dosage: 400 MG, QD
     Route: 048
     Dates: start: 20170825, end: 20170912
  9. CERTICAN [Concomitant]
     Active Substance: EVEROLIMUS
     Dosage: 1 DF, BID
  10. DUROGESIC [Concomitant]
     Active Substance: FENTANYL
     Dosage: 25 ?G/H AND 12 ?G/H EVERY 72 HOUR 1 PATCH RESPECTIVELY
     Route: 062
  11. PANTOPRAZOLE [Concomitant]
     Active Substance: PANTOPRAZOLE
     Dosage: 20 MG, BID
  12. ROCALTROL [Concomitant]
     Active Substance: CALCITRIOL
     Dosage: .125 ?G, AFTER ERACH DIALYSIS
     Route: 048
  13. MARCOUMAR [Concomitant]
     Active Substance: PHENPROCOUMON
     Dosage: 1 DF, ACCODING TO TREATMETN PLAN
  14. AVALOX [Suspect]
     Active Substance: MOXIFLOXACIN HYDROCHLORIDE
     Dosage: 400 MG, QD
     Route: 048
     Dates: start: 20180602, end: 20180603
  15. DIALVIT [Concomitant]
     Dosage: 1 DF AFTER EACH DIALYSIS
  16. AVALOX [Suspect]
     Active Substance: MOXIFLOXACIN HYDROCHLORIDE
     Dosage: 400 MG, QD
     Route: 048
     Dates: start: 20180312, end: 20180316
  17. CARVEDILOL. [Concomitant]
     Active Substance: CARVEDILOL
     Dosage: 1 DF, TID, ON DIALYSIS DAYS
  18. LESCOL [Concomitant]
     Active Substance: FLUVASTATIN SODIUM
     Dosage: 20 MG, QD
  19. VI-DE 3 [Concomitant]
     Active Substance: CHOLECALCIFEROL
     Dosage: 20 GTT, AFTER EACH DIALYSIS
     Route: 048
  20. AVALOX [Suspect]
     Active Substance: MOXIFLOXACIN HYDROCHLORIDE
     Dosage: 400 MG, QD
     Route: 048
     Dates: start: 20171003, end: 20171007
  21. CAPTOPRIL. [Concomitant]
     Active Substance: CAPTOPRIL
     Dosage: 1 DF, TID
  22. ACIDUM FOLICUM [Concomitant]
     Active Substance: FOLIC ACID
     Dosage: 5 MG, OW
  23. EUTHYROX [Concomitant]
     Active Substance: LEVOTHYROXINE SODIUM
     Dosage: 50 ?G, QD
  24. MAGNESIOCARD [Concomitant]
     Active Substance: MAGNESIUM ASPARTATE HYDROCHLORIDE
     Dosage: 10 MMOL, BID
  25. RENVELA [Concomitant]
     Active Substance: SEVELAMER CARBONATE
     Dosage: 1600 MG, TID

REACTIONS (2)
  - C-reactive protein increased [Recovered/Resolved]
  - C-reactive protein increased [Recovered/Resolved]

NARRATIVE: CASE EVENT DATE: 2017
